FAERS Safety Report 9359706 (Version 3)
Quarter: 2013Q3

REPORT INFORMATION
  Report Type: Spontaneous
  Country: US (occurrence: US)
  Receive Date: 20130621
  Receipt Date: 20130806
  Transmission Date: 20140515
  Serious: Yes (Disabling, Other)
  Sender: FDA-Public Use
  Company Number: US-009507513-1306USA008029

PATIENT
  Sex: Female
  Weight: 117.46 kg

DRUGS (8)
  1. VICTRELIS [Suspect]
     Indication: CHRONIC HEPATITIS C
     Dosage: 800 MG, TID
     Route: 048
     Dates: start: 20130430
  2. PEGASYS [Suspect]
     Indication: HEPATITIS C
     Dosage: 180 MICROGRAM, UNK
     Route: 058
     Dates: start: 201304
  3. RIBASPHERE [Suspect]
     Indication: HEPATITIS C
     Dosage: 1200 MG, PILL
     Route: 048
     Dates: start: 201304
  4. METFORMIN [Concomitant]
  5. LISINOPRIL [Concomitant]
     Route: 048
  6. TRAZODONE HYDROCHLORIDE [Concomitant]
  7. ALPRAZOLAM [Concomitant]
  8. FOLTX [Concomitant]

REACTIONS (6)
  - Activities of daily living impaired [Recovering/Resolving]
  - Fatigue [Recovering/Resolving]
  - Muscular weakness [Recovering/Resolving]
  - Glossodynia [Recovering/Resolving]
  - Anaemia [Unknown]
  - Insomnia [Unknown]
